FAERS Safety Report 6225825-1 (Version None)
Quarter: 2009Q2

REPORT INFORMATION
  Report Type: 
  Country: None (occurrence: None)
  Receive Date: 20090612
  Receipt Date: 20090505
  Transmission Date: 20091009
  Serious: No
  Sender: FDA-Public Use
  Company Number: US-ABBOTT-09P-163-0571114-00

PATIENT
  Sex: Male
  Weight: 104.42 kg

DRUGS (9)
  1. HUMIRA [Suspect]
     Indication: PSORIASIS
     Route: 058
     Dates: start: 20090306
  2. CITALOPRAM [Concomitant]
     Indication: DEPRESSION
     Route: 048
  3. LORAZEPAM [Concomitant]
     Indication: ANXIETY
     Route: 048
  4. CVS ALLERGY RELIEF [Concomitant]
     Indication: SEASONAL ALLERGY
     Route: 048
  5. LORTAB [Concomitant]
     Indication: BACK INJURY
     Dosage: 10/500
     Route: 048
  6. LORTAB [Concomitant]
     Indication: ROAD TRAFFIC ACCIDENT
  7. EXFORGE [Concomitant]
     Indication: HYPERTENSION
     Dosage: 10/320
     Route: 048
  8. METHOCARBAMOL [Concomitant]
     Indication: MUSCLE SPASMS
     Route: 048
  9. NAPROXEN [Concomitant]
     Indication: ARTHRITIS
     Route: 048

REACTIONS (4)
  - ADVERSE DRUG REACTION [None]
  - FATIGUE [None]
  - NAUSEA [None]
  - UPPER RESPIRATORY TRACT INFECTION [None]
